FAERS Safety Report 17423576 (Version 1)
Quarter: 2020Q1

REPORT INFORMATION
  Report Type: Spontaneous
  Country: US (occurrence: US)
  Receive Date: 20200131
  Receipt Date: 20200131
  Transmission Date: 20200409
  Serious: No
  Sender: FDA-Public Use
  Company Number: None

PATIENT
  Age: 82 Year
  Sex: Male

DRUGS (1)
  1. ABIRATERONE 250MG TAB [Suspect]
     Active Substance: ABIRATERONE
     Route: 048
     Dates: start: 201807

REACTIONS (3)
  - Oral mucosal blistering [None]
  - Stomatitis [None]
  - Gastrointestinal infection [None]

NARRATIVE: CASE EVENT DATE: 20200131
